FAERS Safety Report 8089668-9 (Version None)
Quarter: 2012Q1

REPORT INFORMATION
  Report Type: 
  Country: None (occurrence: None)
  Receive Date: 20120128
  Receipt Date: 20110620
  Transmission Date: 20120608
  Serious: Yes (Other)
  Sender: FDA-Public Use
  Company Number: US-ABBOTT-11P-163-0733674-00

PATIENT
  Sex: Female
  Weight: 97.156 kg

DRUGS (1)
  1. HUMIRA [Suspect]
     Indication: RHEUMATOID ARTHRITIS
     Dosage: 1 IN 3 WEEKS, TILL LAST 6 MONTHS
     Dates: start: 20050101, end: 20110501

REACTIONS (5)
  - PAIN [None]
  - FATIGUE [None]
  - HOT FLUSH [None]
  - BREAST CANCER [None]
  - ASTHENIA [None]
